FAERS Safety Report 16910057 (Version 1)
Quarter: 2019Q4

REPORT INFORMATION
  Report Type: Spontaneous
  Country: JP (occurrence: JP)
  Receive Date: 20191011
  Receipt Date: 20191011
  Transmission Date: 20200122
  Serious: Yes (Hospitalization, Other)
  Sender: FDA-Public Use
  Company Number: JP-B.I. PHARMACEUTICALS,INC./RIDGEFIELD-2019-NB-103860

PATIENT
  Age: 79 Year
  Sex: Male

DRUGS (1)
  1. PRAZAXA [Suspect]
     Active Substance: DABIGATRAN ETEXILATE MESYLATE
     Indication: ATRIAL FIBRILLATION
     Route: 048
     Dates: end: 20190921

REACTIONS (5)
  - Cerebral infarction [Unknown]
  - Fall [Unknown]
  - Mediastinal haematoma [Recovered/Resolved]
  - Subdural haematoma [Recovered/Resolved]
  - Arterial injury [Unknown]

NARRATIVE: CASE EVENT DATE: 20190921
